FAERS Safety Report 6378522-6 (Version None)
Quarter: 2009Q3

REPORT INFORMATION
  Report Type: 
  Country: None (occurrence: None)
  Receive Date: 20090928
  Receipt Date: 20090916
  Transmission Date: 20100115
  Serious: Yes (Other)
  Sender: FDA-Public Use
  Company Number: US-BIOGENIDEC-2009BI030405

PATIENT
  Sex: Female

DRUGS (1)
  1. AVONEX [Suspect]
     Indication: MULTIPLE SCLEROSIS
     Route: 030
     Dates: start: 20000222

REACTIONS (5)
  - CORONARY ARTERY OCCLUSION [None]
  - DEPRESSION [None]
  - DRUG EFFECT DECREASED [None]
  - HANGOVER [None]
  - STENT PLACEMENT [None]
